FAERS Safety Report 24952909 (Version 2)
Quarter: 2025Q1

REPORT INFORMATION
  Report Type: Spontaneous
  Country: JP (occurrence: JP)
  Receive Date: 20250211
  Receipt Date: 20250220
  Transmission Date: 20250408
  Serious: Yes (Other)
  Sender: CSL BEHRING
  Company Number: JP-BEH-2025194447

PATIENT
  Age: 68 Year
  Sex: Female
  Weight: 31.8 kg

DRUGS (17)
  1. HUMAN IMMUNOGLOBULIN G [Suspect]
     Active Substance: HUMAN IMMUNOGLOBULIN G
     Route: 042
  2. HUMAN IMMUNOGLOBULIN G [Suspect]
     Active Substance: HUMAN IMMUNOGLOBULIN G
     Route: 042
  3. DEXAMETHASONE [Concomitant]
     Active Substance: DEXAMETHASONE
  4. METHYLPREDNISOLONE SODIUM SUCCINATE [Concomitant]
     Active Substance: METHYLPREDNISOLONE SODIUM SUCCINATE
     Route: 042
  5. METHYLPREDNISOLONE SODIUM SUCCINATE [Concomitant]
     Active Substance: METHYLPREDNISOLONE SODIUM SUCCINATE
     Route: 042
  6. TACROLIMUS [Concomitant]
     Active Substance: TACROLIMUS
  7. PREDNISOLONE [Concomitant]
     Active Substance: PREDNISOLONE
  8. PREDNISOLONE [Concomitant]
     Active Substance: PREDNISOLONE
  9. MIYA-BM [Concomitant]
     Active Substance: CLOSTRIDIUM BUTYRICUM SPORES STRAIN M-55
     Dosage: 2 DF, TID
  10. BIOTIN [Concomitant]
     Active Substance: BIOTIN
     Dosage: 0.2% 0.5 G, BID
  11. CALCIUM ASPARTATE [Concomitant]
     Active Substance: CALCIUM ASPARTATE
     Dosage: 400 MG, BID
  12. MELOXICAM [Concomitant]
     Active Substance: MELOXICAM
     Dosage: 10 MG, QD
  13. RISEDRONATE SODIUM [Concomitant]
     Active Substance: RISEDRONATE SODIUM
     Dosage: 75 MG, QMT
  14. HERBALS [Concomitant]
     Active Substance: HERBALS
  15. MAGNESIUM OXIDE [Concomitant]
     Active Substance: MAGNESIUM OXIDE
  16. DICLOFENAC SODIUM [Concomitant]
     Active Substance: DICLOFENAC SODIUM
     Indication: Pain
  17. FAMOTIDINE [Concomitant]
     Active Substance: FAMOTIDINE
     Indication: Pain

REACTIONS (7)
  - Ileus [Unknown]
  - Ileus [Unknown]
  - Ileus [Unknown]
  - Ileus [Unknown]
  - Axonal and demyelinating polyneuropathy [Unknown]
  - Dysphonia [Unknown]
  - Muscular weakness [Unknown]
